FAERS Safety Report 20777753 (Version 1)
Quarter: 2022Q2

REPORT INFORMATION
  Report Type: Spontaneous
  Country: FR (occurrence: FR)
  Receive Date: 20220503
  Receipt Date: 20220503
  Transmission Date: 20220721
  Serious: Yes (Other)
  Sender: FDA-Public Use
  Company Number: None

PATIENT
  Age: 32 Year
  Sex: Female

DRUGS (2)
  1. VANCOMYCIN [Suspect]
     Active Substance: VANCOMYCIN
     Indication: Brain empyema
     Dosage: 1G 2 TIMES PER DAY
     Route: 042
     Dates: start: 20210617, end: 20210705
  2. MEROPENEM [Suspect]
     Active Substance: MEROPENEM
     Indication: Brain empyema
     Dosage: 2G 3 TIMES A DAY
     Route: 042
     Dates: start: 20210617, end: 20210705

REACTIONS (2)
  - Hepatic cytolysis [Recovered/Resolved]
  - Cholestasis [Recovered/Resolved]

NARRATIVE: CASE EVENT DATE: 20210705
